FAERS Safety Report 24229920 (Version 1)
Quarter: 2024Q3

REPORT INFORMATION
  Report Type: Report from Study
  Country: US (occurrence: US)
  Receive Date: 20240820
  Receipt Date: 20240820
  Transmission Date: 20241016
  Serious: Yes (Hospitalization, Other)
  Sender: HLS THERAPEUTICS
  Company Number: US-HLS-202400752

PATIENT
  Sex: Male

DRUGS (1)
  1. CLOZAPINE [Suspect]
     Active Substance: CLOZAPINE
     Indication: Product used for unknown indication
     Route: 065

REACTIONS (7)
  - Chronic kidney disease [Unknown]
  - Hallucination [Unknown]
  - Hypertension [Unknown]
  - Troponin increased [Unknown]
  - Schizophrenia [Unknown]
  - Seizure [Unknown]
  - Substance abuse [Unknown]
